FAERS Safety Report 5319665-5 (Version None)
Quarter: 2007Q2

REPORT INFORMATION
  Report Type: 
  Country: None (occurrence: None)
  Receive Date: 20070508
  Receipt Date: 20070503
  Transmission Date: 20071010
  Serious: Yes (Hospitalization, Other)
  Sender: FDA-Public Use
  Company Number: IT-MERCK-0705ITA00004

PATIENT
  Age: 59 Year
  Sex: Female

DRUGS (3)
  1. TIMOPTIC [Suspect]
     Route: 047
  2. PROPAFENONE HYDROCHLORIDE [Suspect]
     Indication: ATRIAL FIBRILLATION
     Route: 065
     Dates: start: 20040521
  3. HEPARIN LOW MOLECULAR WEIGHT [Concomitant]
     Indication: ATRIAL FIBRILLATION
     Route: 065
     Dates: start: 20040521

REACTIONS (9)
  - ATRIAL FIBRILLATION [None]
  - BLOOD CHOLESTEROL INCREASED [None]
  - CARDIAC ARREST [None]
  - DILATATION ATRIAL [None]
  - DRUG INTERACTION [None]
  - HYPOTENSION [None]
  - MITRAL VALVE INCOMPETENCE [None]
  - TRICUSPID VALVE INCOMPETENCE [None]
  - VENTRICULAR HYPERTROPHY [None]
